FAERS Safety Report 15629349 (Version 1)
Quarter: 2018Q4

REPORT INFORMATION
  Report Type: Spontaneous
  Country: GB (occurrence: GB)
  Receive Date: 20181117
  Receipt Date: 20181117
  Transmission Date: 20190205
  Serious: Yes (Other)
  Sender: FDA-Public Use
  Company Number: GB-TEVA-2018-GB-975218

PATIENT
  Age: 59 Year
  Sex: Female
  Weight: 94 kg

DRUGS (14)
  1. CLARITHROMYCIN. [Suspect]
     Active Substance: CLARITHROMYCIN
     Route: 065
     Dates: start: 20170116
  2. CO-AMOXICLAV [Concomitant]
     Active Substance: AMOXICILLIN\CLAVULANATE POTASSIUM
     Dosage: 3 DOSAGE FORMS DAILY;
     Route: 065
     Dates: start: 20161109, end: 20161116
  3. NYSTATIN. [Concomitant]
     Active Substance: NYSTATIN
     Dosage: 4 ML DAILY;
     Route: 065
     Dates: start: 20170116, end: 20170117
  4. ZOPICLONE [Concomitant]
     Active Substance: ZOPICLONE
     Dosage: 1 DOSAGE FORMS DAILY; NIGHT
     Route: 065
     Dates: start: 20170116
  5. AMOXICILLIN. [Concomitant]
     Active Substance: AMOXICILLIN
     Dosage: 3 DOSAGE FORMS DAILY;
     Route: 065
     Dates: start: 20170116
  6. CITALOPRAM [Concomitant]
     Active Substance: CITALOPRAM HYDROBROMIDE
     Dosage: 1 DOSAGE FORMS DAILY; MORNING
     Route: 065
     Dates: start: 20091117
  7. NASEPTIN [Concomitant]
     Active Substance: CHLORHEXIDINE HYDROCHLORIDE\NEOMYCIN SULFATE
     Dosage: 4 DOSAGE FORMS DAILY; LEFT NOSTRIL
     Route: 045
     Dates: start: 20161223, end: 20170102
  8. COCODAMOL [Concomitant]
     Active Substance: ACETAMINOPHEN\CODEINE PHOSPHATE
     Dosage: TAKE 1 OR 2 4 TIMES/DAY
     Route: 065
     Dates: start: 20100518
  9. GAVISCON ADVANCE [Concomitant]
     Active Substance: POTASSIUM BICARBONATE\SODIUM ALGINATE
     Dosage: 5ML - 10ML, 4 TIMES/DAY, PEPPERMINT
     Route: 065
     Dates: start: 20161109, end: 20161110
  10. SIMVASTATIN. [Concomitant]
     Active Substance: SIMVASTATIN
     Dosage: 1 DOSAGE FORMS DAILY; AT NIGHT
     Route: 065
     Dates: start: 20110114
  11. MOMETASONE [Concomitant]
     Active Substance: MOMETASONE
     Dosage: 2 DOSAGE FORMS DAILY; ONE PUFF TO BE USED TWICE DAILY INTO EACH NOSTRIL
     Route: 045
     Dates: start: 20161109, end: 20161110
  12. LEVOTHYROXINE. [Concomitant]
     Active Substance: LEVOTHYROXINE
     Dosage: 1 DOSAGE FORMS DAILY; MORNING
     Route: 065
     Dates: start: 20091117
  13. PREGABALIN. [Concomitant]
     Active Substance: PREGABALIN
     Dosage: 2 DOSAGE FORMS DAILY;
     Route: 065
     Dates: start: 20161110
  14. OMEPRAZOLE. [Concomitant]
     Active Substance: OMEPRAZOLE
     Dosage: 3 DOSAGE FORMS DAILY;
     Route: 065
     Dates: start: 20130110

REACTIONS (2)
  - Wheezing [Unknown]
  - Diarrhoea [Recovered/Resolved]

NARRATIVE: CASE EVENT DATE: 20170116
